FAERS Safety Report 20873953 (Version 1)
Quarter: 2022Q2

REPORT INFORMATION
  Report Type: Spontaneous
  Country: IT (occurrence: IT)
  Receive Date: 20220525
  Receipt Date: 20220525
  Transmission Date: 20220721
  Serious: Yes (Death, Hospitalization, Other)
  Sender: FDA-Public Use
  Company Number: IT-NOVARTISPH-NVSC2022IT119488

PATIENT
  Age: 68 Year
  Sex: Male

DRUGS (6)
  1. MIDOSTAURIN [Suspect]
     Active Substance: MIDOSTAURIN
     Indication: Acute myeloid leukaemia
     Dosage: UNK
     Route: 065
     Dates: start: 202103
  2. MIDOSTAURIN [Suspect]
     Active Substance: MIDOSTAURIN
     Indication: Mastocytosis
     Dosage: 100 MG, QD
     Route: 065
  3. DECITABINE [Suspect]
     Active Substance: DECITABINE
     Indication: Acute myeloid leukaemia
     Dosage: UNK
     Route: 065
  4. DECITABINE [Suspect]
     Active Substance: DECITABINE
     Indication: Mastocytosis
  5. VENETOCLAX [Suspect]
     Active Substance: VENETOCLAX
     Indication: Acute myeloid leukaemia
     Dosage: UNK
     Route: 065
  6. VENETOCLAX [Suspect]
     Active Substance: VENETOCLAX
     Indication: Mastocytosis

REACTIONS (7)
  - Sepsis [Fatal]
  - Diarrhoea [Unknown]
  - Pancytopenia [Unknown]
  - Cellulitis [Unknown]
  - Opportunistic infection [Unknown]
  - Bone marrow failure [Unknown]
  - Acute myeloid leukaemia recurrent [Unknown]
